FAERS Safety Report 8846118 (Version 1)
Quarter: 2012Q4

REPORT INFORMATION
  Report Type: 
  Country: FR (occurrence: FR)
  Receive Date: 20121017
  Receipt Date: 20121017
  Transmission Date: 20130627
  Serious: Yes (Other)
  Sender: FDA-Public Use
  Company Number: FR-ELI_LILLY_AND_COMPANY-FR201210002233

PATIENT
  Age: 86 Year
  Sex: Female

DRUGS (1)
  1. FORSTEO [Suspect]
     Indication: OSTEOPOROSIS
     Dosage: 20 ug, UNK
     Route: 058
     Dates: start: 20110915

REACTIONS (2)
  - Cerebrovascular accident [Recovered/Resolved]
  - Ankle fracture [Recovered/Resolved]
